FAERS Safety Report 8401531-X (Version None)
Quarter: 2012Q2

REPORT INFORMATION
  Report Type: 
  Country: None (occurrence: None)
  Receive Date: 20120601
  Receipt Date: 20120522
  Transmission Date: 20120825
  Serious: Yes (Other)
  Sender: FDA-Public Use
  Company Number: JP-VERTEX PHARMACEUTICALS INC.-AE-2012-007811

PATIENT
  Age: 65 Year
  Sex: Female

DRUGS (5)
  1. RABEPRAZOLE SODIUM [Concomitant]
     Route: 048
     Dates: start: 20120511
  2. RIBAVIRIN [Concomitant]
     Route: 048
     Dates: start: 20120508, end: 20120518
  3. TELAVIC (TELAPREVIR) [Suspect]
     Indication: HEPATITIS C
     Route: 048
     Dates: start: 20120508, end: 20120511
  4. TELAVIC (TELAPREVIR) [Suspect]
     Route: 048
     Dates: start: 20120512, end: 20120518
  5. PEGINTERFERON ALFA-2B [Concomitant]
     Route: 051
     Dates: start: 20120508, end: 20120515

REACTIONS (1)
  - DRUG ERUPTION [None]
